FAERS Safety Report 18483606 (Version 2)
Quarter: 2021Q4

REPORT INFORMATION
  Report Type: Spontaneous
  Country: US (occurrence: None)
  Receive Date: 20201109
  Receipt Date: 20211111
  Transmission Date: 20220303
  Serious: No
  Sender: FDA-Public Use
  Company Number: US-ROCHE-2567331

PATIENT
  Sex: Female
  Weight: 56.750 kg

DRUGS (9)
  1. PULMOZYME [Suspect]
     Active Substance: DORNASE ALFA
     Indication: Bacterial infection
     Dosage: 1 MG/ML 2.5ML, 1 TIME DAILYZ; INHALE VIA NEBULIZER.
     Route: 055
  2. PULMOZYME [Suspect]
     Active Substance: DORNASE ALFA
     Dosage: (1MG/ML) INHALE 2.5 ML VIA NEBULIZER
     Route: 055
     Dates: start: 20200313
  3. PULMOZYME [Suspect]
     Active Substance: DORNASE ALFA
     Dosage: (1MG/ML) INHALE 2.5 ML VIA NEBULIZER
     Route: 055
     Dates: start: 20200605
  4. TOBI [Concomitant]
     Active Substance: TOBRAMYCIN
     Dates: start: 20200311
  5. AZITHROMYCIN [Concomitant]
     Active Substance: AZITHROMYCIN
     Route: 048
     Dates: start: 20200311
  6. KALYDECO [Concomitant]
     Active Substance: IVACAFTOR
     Route: 048
     Dates: start: 20200311
  7. ZENPEP [Concomitant]
     Active Substance: PANCRELIPASE AMYLASE\PANCRELIPASE LIPASE\PANCRELIPASE PROTEASE
     Route: 048
     Dates: start: 20200311
  8. ALBUTEROL [Concomitant]
     Active Substance: ALBUTEROL
     Route: 048
     Dates: start: 20200311
  9. SODIUM ACETATE [Concomitant]
     Active Substance: SODIUM ACETATE
     Dates: start: 20200311

REACTIONS (4)
  - Influenza [Recovered/Resolved]
  - Intentional product use issue [Unknown]
  - Off label use [Unknown]
  - Weight increased [Unknown]
